FAERS Safety Report 4367308-X (Version None)
Quarter: 2004Q2

REPORT INFORMATION
  Report Type: 
  Country: None (occurrence: None)
  Receive Date: 20040601
  Receipt Date: 20040525
  Transmission Date: 20050107
  Serious: Yes (Death)
  Sender: FDA-Public Use
  Company Number: PHNR2004AU00984

PATIENT
  Age: 44 Year
  Sex: Female
  Weight: 126 kg

DRUGS (3)
  1. CLOZARIL [Suspect]
     Dosage: 25 - 650 MG/DAY
     Dates: start: 19960111, end: 19990201
  2. CLOZARIL [Suspect]
     Dosage: 25 - 400 MG/DAY
     Dates: start: 19990501
  3. SOLIAN [Concomitant]

REACTIONS (2)
  - SUDDEN DEATH [None]
  - WEIGHT INCREASED [None]
